FAERS Safety Report 14333405 (Version 3)
Quarter: 2018Q1

REPORT INFORMATION
  Report Type: Spontaneous
  Country: JP (occurrence: JP)
  Receive Date: 20171228
  Receipt Date: 20180122
  Transmission Date: 20180509
  Serious: Yes (Hospitalization, Other)
  Sender: FDA-Public Use
  Company Number: JP-ASTRAZENECA-2017SF31275

PATIENT
  Age: 78 Year
  Sex: Female
  Weight: 29 kg

DRUGS (2)
  1. IRESSA [Suspect]
     Active Substance: GEFITINIB
     Indication: NON-SMALL CELL LUNG CANCER
     Route: 048
     Dates: start: 20171213, end: 20171219
  2. NAIXAN [Concomitant]
     Active Substance: NAPROXEN SODIUM
     Route: 048
     Dates: start: 20171129

REACTIONS (2)
  - Drug-induced liver injury [Recovered/Resolved]
  - Interstitial lung disease [Recovered/Resolved]

NARRATIVE: CASE EVENT DATE: 20171218
